FAERS Safety Report 4398882-5 (Version None)
Quarter: 2004Q2

REPORT INFORMATION
  Report Type: 
  Country: None (occurrence: None)
  Receive Date: 20040621
  Receipt Date: 20040213
  Transmission Date: 20050107
  Serious: Yes (Death)
  Sender: FDA-Public Use
  Company Number: USA-2003-0007239

PATIENT
  Age: 19 Year
  Sex: Female
  Weight: 59.4 kg

DRUGS (8)
  1. OXYCODONE HCL [Suspect]
  2. MORPHINE SULFATE [Suspect]
  3. MEPERIDINE HCL [Suspect]
  4. TRIMETHOBENZAMIDE           (TRIMETHOBENZAMIDE) [Suspect]
  5. QUETIAPINE (QUETIAPINE) [Suspect]
  6. CITALOPRAM (CITALOPRAM) [Suspect]
  7. NICOTINE [Suspect]
  8. LIDOCAINE [Suspect]

REACTIONS (1)
  - ACCIDENTAL OVERDOSE [None]
